FAERS Safety Report 7312241-4 (Version None)
Quarter: 2011Q1

REPORT INFORMATION
  Report Type: 
  Country: None (occurrence: None)
  Receive Date: 20110224
  Receipt Date: 20110217
  Transmission Date: 20110831
  Serious: Yes (Other)
  Sender: FDA-Public Use
  Company Number: A0914069A

PATIENT
  Sex: Female

DRUGS (1)
  1. TYKERB [Suspect]
     Indication: PROPHYLAXIS
     Dosage: 1250MG PER DAY
     Route: 048
     Dates: start: 20101011, end: 20110214

REACTIONS (1)
  - BREAST CANCER METASTATIC [None]
